FAERS Safety Report 9775829 (Version 1)
Quarter: 2013Q4

REPORT INFORMATION
  Report Type: Spontaneous
  Country: US (occurrence: US)
  Receive Date: 20131220
  Receipt Date: 20131220
  Transmission Date: 20140711
  Serious: Yes (Hospitalization)
  Sender: FDA-Public Use
  Company Number: US-GLAXOSMITHKLINE-A1054127A

PATIENT
  Age: 63 Year
  Sex: Male

DRUGS (7)
  1. ADVAIR [Suspect]
     Indication: CHRONIC OBSTRUCTIVE PULMONARY DISEASE
     Dosage: 1PUFF TWICE PER DAY
     Route: 055
     Dates: start: 201301
  2. UNKNOWN [Suspect]
     Route: 055
  3. ALBUTEROL NEBULIZER [Concomitant]
  4. PREDNISONE [Concomitant]
  5. LEVOFLOXACIN [Concomitant]
  6. SPIRIVA [Concomitant]
  7. PROAIR HFA [Concomitant]

REACTIONS (9)
  - Bronchial obstruction [Recovering/Resolving]
  - Pneumonia [Recovering/Resolving]
  - Dyspnoea [Recovering/Resolving]
  - Oxygen saturation decreased [Recovering/Resolving]
  - Malaise [Recovering/Resolving]
  - Pyrexia [Recovering/Resolving]
  - Hypertension [Recovering/Resolving]
  - Viral infection [Recovering/Resolving]
  - Bronchitis [Recovering/Resolving]
